FAERS Safety Report 6007238-0 (Version None)
Quarter: 2008Q4

REPORT INFORMATION
  Report Type: 
  Country: None (occurrence: None)
  Receive Date: 20081217
  Receipt Date: 20080221
  Transmission Date: 20090506
  Serious: No
  Sender: FDA-Public Use
  Company Number: US-ASTRAZENECA-2008UW02675

PATIENT
  Age: 69 Year
  Sex: Female
  Weight: 57.2 kg

DRUGS (3)
  1. CRESTOR [Suspect]
     Indication: BLOOD CHOLESTEROL INCREASED
     Route: 048
  2. TOPROL-XL [Concomitant]
     Route: 048
  3. ASPIRIN [Concomitant]

REACTIONS (6)
  - FATIGUE [None]
  - LIMB DISCOMFORT [None]
  - MYALGIA [None]
  - PAIN [None]
  - PAIN IN EXTREMITY [None]
  - RESTLESSNESS [None]
